FAERS Safety Report 5008903-4 (Version None)
Quarter: 2006Q2

REPORT INFORMATION
  Report Type: 
  Country: None (occurrence: None)
  Receive Date: 20060519
  Receipt Date: 20060505
  Transmission Date: 20061013
  Serious: Yes (Life-Threatening, Hospitalization, Other)
  Sender: FDA-Public Use
  Company Number: 0206013

PATIENT
  Age: 82 Year
  Sex: Female
  Weight: 54.4316 kg

DRUGS (3)
  1. DEPODUR [Suspect]
     Indication: POSTOPERATIVE ANALGESIA
     Dosage: 6 MG), EPIDURAL.
     Route: 008
     Dates: start: 20060505, end: 20060505
  2. DARVOCET [Concomitant]
  3. TORADOL [Concomitant]

REACTIONS (10)
  - CONFUSION POSTOPERATIVE [None]
  - LOSS OF CONSCIOUSNESS [None]
  - OXYGEN SATURATION DECREASED [None]
  - PANIC REACTION [None]
  - POST PROCEDURAL COMPLICATION [None]
  - PROCEDURAL PAIN [None]
  - PULMONARY CONGESTION [None]
  - RESPIRATORY DEPRESSION [None]
  - SOMNOLENCE [None]
  - THERAPY NON-RESPONDER [None]
